FAERS Safety Report 24264099 (Version 1)
Quarter: 2024Q3

REPORT INFORMATION
  Report Type: Spontaneous
  Country: US (occurrence: US)
  Receive Date: 20240829
  Receipt Date: 20240829
  Transmission Date: 20241016
  Serious: Yes (Death, Other)
  Sender: SANOFI AVENTIS
  Company Number: US-SA-SAC20240817000843

PATIENT
  Sex: Female

DRUGS (3)
  1. DUPIXENT [Suspect]
     Active Substance: DUPILUMAB
     Indication: Dermatitis atopic
     Dosage: 300 MG, QOW
     Route: 058
     Dates: start: 2016, end: 2024
  2. TACROLIMUS [Concomitant]
     Active Substance: TACROLIMUS
     Route: 061
  3. TRIAMCINOLONE [Concomitant]
     Active Substance: TRIAMCINOLONE
     Route: 061

REACTIONS (2)
  - Death [Fatal]
  - Cardiac disorder [Unknown]
